FAERS Safety Report 12204466 (Version 1)
Quarter: 2016Q1

REPORT INFORMATION
  Report Type: Spontaneous
  Country: US (occurrence: None)
  Receive Date: 20160322
  Receipt Date: 20160322
  Transmission Date: 20160526
  Serious: No
  Sender: FDA-Public Use
  Company Number: None

PATIENT
  Age: 41 Year
  Sex: Male
  Weight: 85 kg

DRUGS (2)
  1. OMNPRADEX [Concomitant]
  2. ZOLOFT [Suspect]
     Active Substance: SERTRALINE HYDROCHLORIDE
     Indication: DEPRESSED MOOD
     Dosage: 1 PILL ONCE DAILY TAKEN BY MOUTH
     Route: 048
     Dates: start: 20160224, end: 20160320

REACTIONS (25)
  - Hunger [None]
  - Agitation [None]
  - Influenza like illness [None]
  - Feeling of body temperature change [None]
  - Paranoia [None]
  - Brain injury [None]
  - Initial insomnia [None]
  - Sleep disorder [None]
  - Nightmare [None]
  - Obsessive thoughts [None]
  - Polydipsia [None]
  - Diarrhoea [None]
  - Headache [None]
  - Thirst [None]
  - Feeling abnormal [None]
  - Malaise [None]
  - Poisoning [None]
  - Nausea [None]
  - Decreased appetite [None]
  - Panic reaction [None]
  - Abnormal dreams [None]
  - Tremor [None]
  - Abdominal discomfort [None]
  - Anxiety [None]
  - Negative thoughts [None]

NARRATIVE: CASE EVENT DATE: 20160224
